FAERS Safety Report 18560238 (Version 1)
Quarter: 2020Q4

REPORT INFORMATION
  Report Type: Spontaneous
  Country: BR (occurrence: BR)
  Receive Date: 20201130
  Receipt Date: 20201130
  Transmission Date: 20210114
  Serious: Yes (Other)
  Sender: FDA-Public Use
  Company Number: BR-TAKEDA-2020TUS052415

PATIENT
  Sex: Female

DRUGS (5)
  1. VENVANSE [Suspect]
     Active Substance: LISDEXAMFETAMINE DIMESYLATE
     Dosage: UNK
  2. VENVANSE [Suspect]
     Active Substance: LISDEXAMFETAMINE DIMESYLATE
     Indication: ATTENTION DEFICIT HYPERACTIVITY DISORDER
     Dosage: 70 MILLIGRAM, QD, 1 CAPSULE PER
     Route: 065
     Dates: start: 20130101
  3. SAXENDA [Concomitant]
     Active Substance: LIRAGLUTIDE
     Indication: WEIGHT DECREASED
  4. SAXENDA [Concomitant]
     Active Substance: LIRAGLUTIDE
     Indication: PROPHYLAXIS
     Dosage: UNK
  5. SERTRALINE [Concomitant]
     Active Substance: SERTRALINE HYDROCHLORIDE
     Indication: PRODUCT USED FOR UNKNOWN INDICATION
     Dosage: 100 MILLIGRAM

REACTIONS (8)
  - Hyperhidrosis [Unknown]
  - Product use issue [Unknown]
  - Decreased activity [Unknown]
  - Fatigue [Unknown]
  - Exposure during pregnancy [Unknown]
  - Thinking abnormal [Unknown]
  - Drug ineffective [Unknown]
  - Blood pressure decreased [Unknown]
